FAERS Safety Report 24885454 (Version 1)
Quarter: 2025Q1

REPORT INFORMATION
  Report Type: Spontaneous
  Country: CN (occurrence: CN)
  Receive Date: 20250124
  Receipt Date: 20250124
  Transmission Date: 20250409
  Serious: Yes (Other)
  Sender: MERCK KGAA
  Company Number: CN-Merck Healthcare KGaA-2025002508

PATIENT
  Sex: Female

DRUGS (1)
  1. EUTHYROX [Suspect]
     Active Substance: LEVOTHYROXINE SODIUM
     Indication: Hypothyroidism

REACTIONS (2)
  - Ultrasound antenatal screen abnormal [Unknown]
  - Maternal exposure during pregnancy [Unknown]
